FAERS Safety Report 8213030-9 (Version None)
Quarter: 2012Q1

REPORT INFORMATION
  Report Type: 
  Country: None (occurrence: None)
  Receive Date: 20120315
  Receipt Date: 20120301
  Transmission Date: 20120608
  Serious: Yes (Hospitalization, Other)
  Sender: FDA-Public Use
  Company Number: US-JNJFOC-20120302461

PATIENT
  Sex: Male
  Weight: 79.18 kg

DRUGS (4)
  1. EMTRICITABINE AND TENOFOVIR DISOPROXIL FUMARATE [Suspect]
     Indication: HIV INFECTION
     Route: 048
     Dates: start: 20120131, end: 20120214
  2. SYNTHROID [Concomitant]
     Route: 065
     Dates: start: 20120110
  3. DARUNAVIR HYDRATE [Suspect]
     Indication: HIV INFECTION
     Route: 048
     Dates: start: 20120131, end: 20120214
  4. COBICISTAT [Suspect]
     Indication: HIV INFECTION
     Route: 048
     Dates: start: 20120131, end: 20120214

REACTIONS (9)
  - CONTUSION [None]
  - THROMBOCYTOPENIA [None]
  - LIP BLISTER [None]
  - PURPURA [None]
  - MOUTH HAEMORRHAGE [None]
  - PETECHIAE [None]
  - IDIOPATHIC THROMBOCYTOPENIC PURPURA [None]
  - DRUG ERUPTION [None]
  - EPISTAXIS [None]
